FAERS Safety Report 21890921 (Version 3)
Quarter: 2023Q1

REPORT INFORMATION
  Report Type: Spontaneous
  Country: US (occurrence: US)
  Receive Date: 20230120
  Receipt Date: 20230216
  Transmission Date: 20230417
  Serious: Yes (Other)
  Sender: FDA-Public Use
  Company Number: US-BRISTOL-MYERS SQUIBB COMPANY-2023-002354

PATIENT
  Age: 79 Year
  Sex: Female
  Weight: 72.57 kg

DRUGS (6)
  1. ELIQUIS [Suspect]
     Active Substance: APIXABAN
     Indication: Cerebrovascular accident prophylaxis
     Route: 048
     Dates: start: 20211210
  2. DILTIAZEM [Concomitant]
     Active Substance: DILTIAZEM
     Indication: Cardiac disorder
     Dosage: EXTENDED RELEASE
  3. METOPROLOL [Concomitant]
     Active Substance: METOPROLOL
     Indication: Cerebrovascular accident
     Dates: start: 2004, end: 202211
  4. METOPROLOL [Concomitant]
     Active Substance: METOPROLOL
  5. METOPROLOL [Concomitant]
     Active Substance: METOPROLOL
  6. DIGOXIN [Concomitant]
     Active Substance: DIGOXIN
     Indication: Product used for unknown indication
     Dosage: TAKE ONE AT NIGHT TIME
     Route: 048

REACTIONS (7)
  - Fall [Unknown]
  - Clavicle fracture [Recovered/Resolved]
  - Asthenia [Unknown]
  - Tremor [Unknown]
  - Gait disturbance [Unknown]
  - Skin discolouration [Unknown]
  - Balance disorder [Unknown]

NARRATIVE: CASE EVENT DATE: 20220501
